FAERS Safety Report 5242309-8 (Version None)
Quarter: 2007Q1

REPORT INFORMATION
  Report Type: 
  Country: None (occurrence: None)
  Receive Date: 20070216
  Receipt Date: 20070216
  Transmission Date: 20070707
  Serious: Yes (Hospitalization)
  Sender: FDA-Public Use
  Company Number: None

PATIENT
  Age: 68 Year
  Sex: Male

DRUGS (10)
  1. WARFARIN SODIUM [Suspect]
     Dosage: 2.5 MG MON + FRI  5 MG OHTER DAYS
     Dates: start: 20010301
  2. PHENYTOIN [Suspect]
     Indication: CONVULSION
     Dates: start: 20011101
  3. FUROSEMIDE [Concomitant]
  4. DIVALPROEX SODIUM [Concomitant]
  5. GLYBURIDE [Concomitant]
  6. TYLENOL W/ CODEINE [Concomitant]
  7. SERTRALINE [Concomitant]
  8. BACLOFEN [Concomitant]
  9. METFORMIN HCL [Concomitant]
  10. TERAZOSIN HCL [Concomitant]

REACTIONS (1)
  - INTERNATIONAL NORMALISED RATIO INCREASED [None]
